FAERS Safety Report 8357662-6 (Version None)
Quarter: 2012Q2

REPORT INFORMATION
  Report Type: 
  Country: None (occurrence: None)
  Receive Date: 20120514
  Receipt Date: 20120509
  Transmission Date: 20120825
  Serious: Yes (Hospitalization)
  Sender: FDA-Public Use
  Company Number: GB-PFIZER INC-2012112838

PATIENT
  Age: 58 Year
  Sex: Female

DRUGS (19)
  1. OMEPRAZOLE [Concomitant]
     Dosage: UNK
     Dates: start: 20101230, end: 20101230
  2. ESOMEPRAZOLE [Concomitant]
     Dosage: 40 MG, 1X/DAY
     Dates: start: 20100401, end: 20101231
  3. ACETYLSALICYLIC ACID [Concomitant]
     Dosage: 300 MG, SINGLE
     Dates: start: 20101230, end: 20101230
  4. FUROSEMIDE [Concomitant]
     Dosage: 40 MG, 1X/DAY
     Dates: start: 20041222
  5. CLOPIDOGREL BISULFATE [Concomitant]
     Dosage: 75 MG, 1X/DAY
     Dates: start: 20101231
  6. TRIMETHOPRIM [Concomitant]
     Dosage: 200 MG, 2X/DAY
     Dates: start: 20110315, end: 20110321
  7. CLOPIDOGREL BISULFATE [Concomitant]
     Dosage: 300 MG, 1X/DAY
     Dates: start: 20101230, end: 20101230
  8. ACETYLSALICYLIC ACID [Concomitant]
     Dosage: 75 MG, 1X/DAY
     Dates: start: 20101231
  9. BISOPROLOL [Concomitant]
     Dosage: 2.5 MG, 1X/DAY
     Dates: start: 20101230, end: 20101230
  10. METFORMIN [Concomitant]
     Dosage: 500 MG, 2X/DAY
     Dates: start: 20100601
  11. NITROGLYCERIN [Concomitant]
     Dosage: 2 DF, 2 PUFFS SINGLE DOSE
     Dates: start: 20101231, end: 20101231
  12. PERINDOPRIL [Concomitant]
     Dosage: 2 MG, 1X/DAY
     Dates: start: 20101230
  13. SIMVASTATIN [Concomitant]
     Dosage: 40 MG, 1X/DAY
     Dates: start: 20100601, end: 20101230
  14. DIAZEPAM [Concomitant]
     Dosage: UNK
     Dates: start: 20101231, end: 20101231
  15. LANSOPRAZOLE [Concomitant]
     Dosage: 30 MG, 1X/DAY
     Dates: start: 20110101
  16. ATORVASTATIN CALCIUM [Suspect]
     Dosage: 80 MG, 1X/DAY
     Dates: start: 20101231
  17. ZOPICLONE [Concomitant]
     Dosage: 7.5 MG, 1X/DAY
     Dates: start: 20090501
  18. CALCIUM CARBONATE/MAGNESIUM HYDROXIDE [Concomitant]
     Dosage: 1 - 2 TABLETS AS REQUIRED
     Dates: start: 20090501
  19. VERAPAMIL HYDROCHLORIDE [Concomitant]
     Dosage: UNK
     Dates: start: 20101231, end: 20101231

REACTIONS (2)
  - MUSCULOSKELETAL CHEST PAIN [None]
  - CHEST PAIN [None]
